FAERS Safety Report 11764616 (Version 1)
Quarter: 2015Q4

REPORT INFORMATION
  Report Type: Spontaneous
  Country: US (occurrence: US)
  Receive Date: 20151120
  Receipt Date: 20151120
  Transmission Date: 20160304
  Serious: No
  Sender: FDA-Public Use
  Company Number: US-ELI_LILLY_AND_COMPANY-US201306002484

PATIENT
  Sex: Male

DRUGS (1)
  1. FORTEO [Suspect]
     Active Substance: TERIPARATIDE
     Indication: SPINAL DISORDER
     Dosage: UNK, QD
     Dates: start: 2011, end: 2012

REACTIONS (8)
  - Body height decreased [Unknown]
  - Nasopharyngitis [Unknown]
  - Dementia [Unknown]
  - Posture abnormal [Not Recovered/Not Resolved]
  - Dysstasia [Unknown]
  - Arthralgia [Unknown]
  - Gait disturbance [Unknown]
  - Off label use [Recovered/Resolved]

NARRATIVE: CASE EVENT DATE: 2011
